FAERS Safety Report 8816710 (Version 3)
Quarter: 2012Q4

REPORT INFORMATION
  Report Type: Spontaneous
  Country: US (occurrence: None)
  Receive Date: 20120928
  Receipt Date: 20121005
  Transmission Date: 20130627
  Serious: Yes (Other)
  Sender: FDA-Public Use
  Company Number: USA/USA/12/0026022

PATIENT
  Age: 62 Year
  Sex: Male
  Weight: 85.28 kg

DRUGS (3)
  1. OLANZAPINE [Suspect]
     Indication: DELUSIONAL DISORDER, UNSPECIFIED TYPE
     Route: 048
  2. OLANZAPINE [Suspect]
     Indication: DELUSIONAL DISORDER, UNSPECIFIED TYPE
     Route: 048
     Dates: start: 20120923
  3. OLANZAPINE [Suspect]
     Indication: DELUSIONAL DISORDER, UNSPECIFIED TYPE

REACTIONS (15)
  - Anxiety [None]
  - Withdrawal syndrome [None]
  - Mood altered [None]
  - Pain [None]
  - Abdominal pain upper [None]
  - Dizziness [None]
  - Tremor [None]
  - Nausea [None]
  - Muscle rigidity [None]
  - Hyperhidrosis [None]
  - Vomiting [None]
  - Vision blurred [None]
  - Thirst [None]
  - Product substitution issue [None]
  - Product quality issue [None]
